FAERS Safety Report 26098777 (Version 1)
Quarter: 2025Q4

REPORT INFORMATION
  Report Type: Spontaneous
  Country: EU (occurrence: EU)
  Receive Date: 20251127
  Receipt Date: 20251127
  Transmission Date: 20260118
  Serious: Yes (Other)
  Sender: ALKEM
  Company Number: EU-ALKEM LABORATORIES LIMITED-DE-ALKEM-2025-04698

PATIENT
  Age: 35 Year
  Sex: Male

DRUGS (9)
  1. MYCOPHENOLATE MOFETIL [Suspect]
     Active Substance: MYCOPHENOLATE MOFETIL
     Indication: Immune thrombocytopenia
     Dosage: 500 MILLIGRAM, TID (THREE TIMES A DAY)
     Route: 048
     Dates: start: 2021
  2. ROMIPLOSTIM [Suspect]
     Active Substance: ROMIPLOSTIM
     Indication: Immune thrombocytopenia
     Dosage: UNK, ONCE WEEKLY (MAXIMUM DOSE OF 500 MICROGRAM PER WEEK)
     Route: 058
     Dates: start: 2018
  3. ROMIPLOSTIM [Suspect]
     Active Substance: ROMIPLOSTIM
     Dosage: UNK, ONCE WEEKLY (UP TO 1000 MICROGRAM)
     Route: 058
  4. AVATROMBOPAG [Suspect]
     Active Substance: AVATROMBOPAG
     Indication: Immune thrombocytopenia
     Dosage: UNK, BID (UP TO 40 MG TWICE PER DAY)
     Route: 048
     Dates: start: 2021
  5. ELTROMBOPAG [Suspect]
     Active Substance: ELTROMBOPAG
     Indication: Immune thrombocytopenia
     Dosage: UNK, QD (UP TO 75 MG PER DAY)
     Route: 048
     Dates: start: 2021
  6. FOSTAMATINIB [Suspect]
     Active Substance: FOSTAMATINIB
     Indication: Immune thrombocytopenia
     Dosage: 400 MILLIGRAM, QD (200 MG TWICE PER DAY)
     Route: 048
     Dates: start: 2021
  7. HYDROXYCHLOROQUINE [Suspect]
     Active Substance: HYDROXYCHLOROQUINE
     Indication: Immune thrombocytopenia
     Dosage: UNK, BID (UP TO 200 MG TWICE PER DAY))
     Route: 048
     Dates: start: 2021
  8. HUMAN IMMUNOGLOBULIN G [Suspect]
     Active Substance: HUMAN IMMUNOGLOBULIN G
     Indication: Immune thrombocytopenia
     Dosage: UNK, QD
     Route: 042
     Dates: start: 2021
  9. HUMAN IMMUNOGLOBULIN G [Suspect]
     Active Substance: HUMAN IMMUNOGLOBULIN G
     Dosage: UNK, QD (0.5-1.0 G/KG (GRAM PER KILOGRAM) PER DAY)
     Route: 042

REACTIONS (2)
  - Drug ineffective [Unknown]
  - Loss of therapeutic response [Unknown]

NARRATIVE: CASE EVENT DATE: 20210101
